FAERS Safety Report 23886405 (Version 1)
Quarter: 2024Q2

REPORT INFORMATION
  Report Type: Spontaneous
  Country: PL (occurrence: None)
  Receive Date: 20240522
  Receipt Date: 20240522
  Transmission Date: 20240716
  Serious: Yes (Other)
  Sender: FDA-Public Use
  Company Number: PL-ROCHE-3562294

PATIENT

DRUGS (2)
  1. OCRELIZUMAB [Suspect]
     Active Substance: OCRELIZUMAB
     Indication: Relapsing-remitting multiple sclerosis
     Route: 065
  2. OCRELIZUMAB [Suspect]
     Active Substance: OCRELIZUMAB
     Indication: Primary progressive multiple sclerosis

REACTIONS (16)
  - Inflammatory bowel disease [Unknown]
  - Fallopian tube abscess [Unknown]
  - Appendicitis [Unknown]
  - Peritonitis [Unknown]
  - Breast cancer [Unknown]
  - Skin cancer [Unknown]
  - Basal cell carcinoma [Unknown]
  - Viral upper respiratory tract infection [Unknown]
  - Bronchitis [Unknown]
  - Sinusitis [Unknown]
  - Urinary tract infection [Unknown]
  - Herpes simplex [Unknown]
  - Alveolar osteitis [Unknown]
  - Lymphadenitis [Unknown]
  - Infusion related reaction [Unknown]
  - Orocutaneous fistula [Unknown]
